FAERS Safety Report 10016781 (Version 3)
Quarter: 2014Q2

REPORT INFORMATION
  Report Type: Report from Study
  Country: CA (occurrence: CA)
  Receive Date: 20140318
  Receipt Date: 20140411
  Transmission Date: 20141212
  Serious: No
  Sender: FDA-Public Use
  Company Number: PHHY2012CA028320

PATIENT
  Age: 45 Year
  Sex: Female

DRUGS (8)
  1. SANDOSTATIN LAR [Suspect]
     Indication: NEUROENDOCRINE TUMOUR
     Dosage: 20 MG, QMO
     Route: 030
     Dates: start: 20120327
  2. SANDOSTATIN LAR [Suspect]
     Dosage: 20 MG, EVERY 4 WEEKS
     Route: 030
  3. SANDOSTATIN LAR [Suspect]
     Dosage: 30 MG EVERY 4 WEEKS
     Route: 030
  4. SANDOSTATIN LAR [Suspect]
     Dosage: 20 MG, QMO
     Route: 030
  5. SANDOSTATIN LAR [Suspect]
     Dosage: 30 MG, QMO
     Route: 030
  6. SANDOSTATIN LAR [Suspect]
     Dosage: 20 MG, EVERY FOUR WEEKS
     Route: 030
  7. AFINITOR [Suspect]
     Indication: NEUROENDOCRINE TUMOUR
     Dosage: 10 MG, DAILY
     Route: 048
     Dates: start: 2012
  8. AFINITOR [Suspect]
     Dosage: 10 MG, QD
     Route: 048
     Dates: start: 20121005

REACTIONS (31)
  - Blood pressure diastolic decreased [Unknown]
  - Localised infection [Unknown]
  - Peripheral swelling [Unknown]
  - Pain in extremity [Recovering/Resolving]
  - Urinary tract infection [Not Recovered/Not Resolved]
  - Acne [Recovering/Resolving]
  - Dry skin [Unknown]
  - Secretion discharge [Unknown]
  - Scab [Unknown]
  - Skin irritation [Not Recovered/Not Resolved]
  - Periorbital oedema [Not Recovered/Not Resolved]
  - Rectal fissure [Unknown]
  - Blood pressure increased [Unknown]
  - Erythema [Not Recovered/Not Resolved]
  - Oedema peripheral [Recovering/Resolving]
  - Musculoskeletal pain [Unknown]
  - Anxiety [Unknown]
  - Skin sensitisation [Unknown]
  - Oedema [Unknown]
  - Cellulitis [Unknown]
  - Dizziness [Not Recovered/Not Resolved]
  - Rash [Not Recovered/Not Resolved]
  - Injection site pain [Unknown]
  - Abdominal pain [Recovered/Resolved]
  - Dyspepsia [Unknown]
  - Nausea [Unknown]
  - Miliaria [Unknown]
  - Eye pruritus [Not Recovered/Not Resolved]
  - Hypersensitivity [Unknown]
  - Pruritus [Unknown]
  - Rash generalised [Not Recovered/Not Resolved]
